FAERS Safety Report 7154784-2 (Version None)
Quarter: 2010Q4

REPORT INFORMATION
  Report Type: 
  Country: None (occurrence: None)
  Receive Date: 20101214
  Receipt Date: 20091109
  Transmission Date: 20110411
  Serious: No
  Sender: FDA-Public Use
  Company Number: US-AMGEN-KDL373645

PATIENT

DRUGS (6)
  1. ENBREL [Suspect]
     Indication: PRODUCT USED FOR UNKNOWN INDICATION
     Dosage: 50 MG, QWK
     Route: 058
  2. LAMOTRIGINE [Concomitant]
     Dosage: 25 MG, UNK
  3. IBUPROFEN [Concomitant]
     Dosage: 200 MG, UNK
  4. BUPROPION [Concomitant]
     Dosage: 100 MG, UNK
  5. CLONIDINE [Concomitant]
     Dosage: .1 MG, UNK
  6. HYDROXYZINE PAMOATE [Concomitant]
     Dosage: 25 MG, UNK

REACTIONS (1)
  - HYPOAESTHESIA [None]
